FAERS Safety Report 15148478 (Version 2)
Quarter: 2018Q3

REPORT INFORMATION
  Report Type: Report from Study
  Country: US (occurrence: US)
  Receive Date: 20180716
  Receipt Date: 20180808
  Transmission Date: 20181010
  Serious: No
  Sender: FDA-Public Use
  Company Number: US-JAZZ-2018-US-010325

PATIENT
  Age: 65 Year
  Sex: Male

DRUGS (30)
  1. TOCOPHEROL [Concomitant]
     Active Substance: TOCOPHEROL
  2. XYREM [Suspect]
     Active Substance: SODIUM OXYBATE
     Indication: CATAPLEXY
     Dosage: 3 G, BID
     Route: 048
     Dates: start: 20180703
  3. FAMOTIDINE. [Concomitant]
     Active Substance: FAMOTIDINE
  4. MELATONIN [Concomitant]
     Active Substance: MELATONIN
  5. TAMSULOSIN HCL [Concomitant]
     Active Substance: TAMSULOSIN HYDROCHLORIDE
  6. TRAZODONE [Concomitant]
     Active Substance: TRAZODONE HYDROCHLORIDE
  7. PREDNISONE. [Concomitant]
     Active Substance: PREDNISONE
  8. VITAMIN D3 [Concomitant]
     Active Substance: CHOLECALCIFEROL
  9. COLOSTRUM [Concomitant]
     Active Substance: DIETARY SUPPLEMENT
  10. DHEA [Concomitant]
     Active Substance: PRASTERONE
  11. LYRICA [Concomitant]
     Active Substance: PREGABALIN
  12. MAGNESIUM [Concomitant]
     Active Substance: MAGNESIUM
  13. SERTRALINE HCL [Concomitant]
     Active Substance: SERTRALINE HYDROCHLORIDE
  14. SUPER ENZYME [Concomitant]
  15. ASCORBIC ACID. [Concomitant]
     Active Substance: ASCORBIC ACID
  16. LAURIC ACID [Concomitant]
  17. VALERIAN ROOT PLUS [Concomitant]
  18. ACETYLSALICYLIC ACID [Concomitant]
     Active Substance: ASPIRIN
  19. CALCIUM CITRATE + D [Concomitant]
  20. FOLIC ACID. [Concomitant]
     Active Substance: FOLIC ACID
  21. VITAMIN B COMPLEX [Concomitant]
     Active Substance: CYANOCOBALAMIN\DEXPANTHENOL\NIACINAMIDE\PYRIDOXINE HYDROCHLORIDE\RIBOFLAVIN 5^-PHOSPHATE SODIUM\THIAMINE HYDROCHLORIDE\VITAMIN B COMPLEX
  22. CHROMIUM PICOLINATE [Concomitant]
     Active Substance: CHROMIUM PICOLINATE
  23. HAWTHORN BERRY [Concomitant]
  24. ORENCIA [Concomitant]
     Active Substance: ABATACEPT
  25. SAW PALMETTO EXTRACT [Concomitant]
  26. XYREM [Suspect]
     Active Substance: SODIUM OXYBATE
     Indication: NARCOLEPSY
     Dosage: 2.25 G, BID
     Route: 048
     Dates: start: 20180626, end: 20180702
  27. LUTEIN?ZEAXANTHIN [Concomitant]
  28. METHOTREXATE. [Concomitant]
     Active Substance: METHOTREXATE
  29. OMEGA?3 FISH OIL [Concomitant]
     Active Substance: FISH OIL\OMEGA-3 FATTY ACIDS
  30. MODAFINIL. [Concomitant]
     Active Substance: MODAFINIL

REACTIONS (8)
  - Somnolence [Unknown]
  - Chills [Unknown]
  - Abnormal dreams [Unknown]
  - Nausea [Unknown]
  - Dry mouth [Not Recovered/Not Resolved]
  - Headache [Not Recovered/Not Resolved]
  - Hyperhidrosis [Unknown]
  - Initial insomnia [Unknown]

NARRATIVE: CASE EVENT DATE: 201806
